FAERS Safety Report 25540532 (Version 3)
Quarter: 2025Q4

REPORT INFORMATION
  Report Type: Report from Study
  Country: US (occurrence: US)
  Receive Date: 20250710
  Receipt Date: 20251124
  Transmission Date: 20260117
  Serious: No
  Sender: TRAVERE THERAPEUTICS
  Company Number: US-TRAVERE-2025TVT01029

PATIENT
  Age: 36 Year
  Sex: Female
  Weight: 53.52 kg

DRUGS (5)
  1. FILSPARI [Suspect]
     Active Substance: SPARSENTAN
     Indication: Chronic kidney disease
     Route: 048
     Dates: start: 202411
  2. FILSPARI [Suspect]
     Active Substance: SPARSENTAN
     Indication: IgA nephropathy
     Route: 048
     Dates: start: 202507
  3. FILSPARI [Suspect]
     Active Substance: SPARSENTAN
     Dosage: CUT 400MG TABLETS OF FILSPARI IN HALF
     Route: 048
  4. AMPHETAMINE SULFATE\DEXTROAMPHETAMINE [Concomitant]
     Active Substance: AMPHETAMINE SULFATE\DEXTROAMPHETAMINE
  5. WELLBUTRIN XL [Concomitant]
     Active Substance: BUPROPION HYDROCHLORIDE

REACTIONS (12)
  - Pruritus [Unknown]
  - Dry skin [Unknown]
  - Malaise [Unknown]
  - Cold sweat [Recovered/Resolved]
  - Dizziness [Recovered/Resolved]
  - Vision blurred [Recovered/Resolved]
  - Palpitations [Unknown]
  - Hypoaesthesia [Unknown]
  - Dysarthria [Unknown]
  - Presyncope [Unknown]
  - Hypotension [Unknown]
  - Off label use [Unknown]

NARRATIVE: CASE EVENT DATE: 20250601
